FAERS Safety Report 4667916-2 (Version None)
Quarter: 2005Q2

REPORT INFORMATION
  Report Type: 
  Country: None (occurrence: None)
  Receive Date: 20050520
  Receipt Date: 20050504
  Transmission Date: 20051028
  Serious: Yes (Death)
  Sender: FDA-Public Use
  Company Number: GB-JNJFOC-20050503904

PATIENT
  Age: 55 Year
  Sex: Female

DRUGS (6)
  1. GALANTAMINE [Suspect]
     Indication: DEMENTIA
     Route: 049
  2. MIRTAZAPINE [Suspect]
     Indication: DEPRESSION
     Dosage: PATIENT TOOK DRUG AT NIGHT
     Route: 049
  3. THYROXINE [Concomitant]
     Indication: HYPOTHYROIDISM
  4. INSULIN [Concomitant]
  5. FRUSEMIDE [Concomitant]
     Indication: DRUG USE FOR UNKNOWN INDICATION
  6. ESTROGEN CONJUGATED [Concomitant]

REACTIONS (1)
  - SUDDEN DEATH [None]
